FAERS Safety Report 20724368 (Version 1)
Quarter: 2022Q2

REPORT INFORMATION
  Report Type: Spontaneous
  Country: FR (occurrence: FR)
  Receive Date: 20220419
  Receipt Date: 20220419
  Transmission Date: 20220720
  Serious: Yes (Other)
  Sender: FDA-Public Use
  Company Number: None

PATIENT
  Age: 16 Year
  Sex: Female

DRUGS (1)
  1. ALPRAZOLAM [Suspect]
     Active Substance: ALPRAZOLAM
     Dosage: 30 TABLETS OF 0.5 MG IN ONE DAY, TAKEN FREQUENTLY WITHOUT NOTION OF FREQUENCY
     Route: 048
     Dates: start: 20211228, end: 20211228

REACTIONS (3)
  - Intentional product misuse [Unknown]
  - Bradyphrenia [Unknown]
  - Off label use [Unknown]

NARRATIVE: CASE EVENT DATE: 20211228
